FAERS Safety Report 12322519 (Version 2)
Quarter: 2016Q3

REPORT INFORMATION
  Report Type: Spontaneous
  Country: DE (occurrence: DE)
  Receive Date: 20160502
  Receipt Date: 20160826
  Transmission Date: 20161109
  Serious: Yes (Other)
  Sender: FDA-Public Use
  Company Number: DE-SA-2015SA185972

PATIENT
  Age: 74 Year
  Sex: Female
  Weight: 46 kg

DRUGS (12)
  1. SOLOSTAR [Concomitant]
     Active Substance: DEVICE
     Indication: DIABETES MELLITUS
  2. MORPHINE [Concomitant]
     Active Substance: MORPHINE
     Dosage: ROUTE: IV AND SC
     Dates: start: 200109, end: 201509
  3. SOLOSTAR [Concomitant]
     Active Substance: DEVICE
     Indication: TYPE 3 DIABETES MELLITUS
  4. LANTUS [Concomitant]
     Active Substance: INSULIN GLARGINE
     Indication: TYPE 3 DIABETES MELLITUS
  5. ONDANSETRON [Concomitant]
     Active Substance: ONDANSETRON
  6. KREON [Concomitant]
     Active Substance: PANCRELIPASE
     Indication: TYPE 3 DIABETES MELLITUS
     Dosage: SACHET
     Route: 048
     Dates: start: 201509
  7. TOUJEO [Suspect]
     Active Substance: INSULIN GLARGINE
     Indication: DIABETES MELLITUS
     Route: 058
     Dates: start: 2015, end: 2015
  8. TOUJEO [Suspect]
     Active Substance: INSULIN GLARGINE
     Indication: TYPE 3 DIABETES MELLITUS
     Route: 058
     Dates: start: 2015, end: 2015
  9. ACTRAPID [Concomitant]
     Active Substance: INSULIN HUMAN
     Indication: TYPE 3 DIABETES MELLITUS
     Route: 058
     Dates: start: 201509
  10. HUMINSULIN NORMAL [Concomitant]
     Dosage: 3/6 - 0 - 3/6 IU AS  INTENSIFIED CONVENTIONAL THERAPY (ICT)
     Route: 058
  11. ALIZAPRIDE [Concomitant]
     Active Substance: ALIZAPRIDE
     Dosage: ROUTE: PO AND PARENTERAL
  12. KALIUM [Concomitant]
     Active Substance: POTASSIUM CHLORIDE
     Indication: SUPPLEMENTATION THERAPY

REACTIONS (3)
  - Dyspnoea [Recovered/Resolved]
  - Condition aggravated [Recovered/Resolved]
  - Respiratory tract oedema [Recovered/Resolved]

NARRATIVE: CASE EVENT DATE: 2015
